FAERS Safety Report 9779867 (Version 2)
Quarter: 2013Q4

REPORT INFORMATION
  Report Type: Report from Study
  Country: BE (occurrence: BE)
  Receive Date: 20131223
  Receipt Date: 20131223
  Transmission Date: 20140711
  Serious: Yes (Hospitalization, Other)
  Sender: FDA-Public Use
  Company Number: BE-VERTEX PHARMACEUTICALS INC-2013-011720

PATIENT
  Age: 59 Year
  Sex: Female

DRUGS (5)
  1. TELAPREVIR [Suspect]
     Indication: HEPATITIS C
     Dosage: 2250 MG, QD
     Route: 048
     Dates: start: 20130819, end: 20131125
  2. COPEGUS [Suspect]
     Indication: HEPATITIS C
     Dosage: 1000 MG, QD
     Route: 048
     Dates: start: 20130819
  3. COPEGUS [Suspect]
     Dosage: 400 MG, QD
     Route: 048
     Dates: start: 20131125
  4. PEGASYS [Suspect]
     Indication: HEPATITIS C
     Dosage: 0.5 ML, QW
     Route: 065
     Dates: start: 20130819
  5. PEGASYS [Suspect]
     Dosage: 0.5 ML, UNK
     Route: 065
     Dates: start: 20131125

REACTIONS (8)
  - Swelling [Not Recovered/Not Resolved]
  - Anaemia [Recovered/Resolved]
  - Palpitations [Not Recovered/Not Resolved]
  - Local swelling [Not Recovered/Not Resolved]
  - Fatigue [Not Recovered/Not Resolved]
  - Pyrexia [Not Recovered/Not Resolved]
  - Dry skin [Not Recovered/Not Resolved]
  - Pruritus [Not Recovered/Not Resolved]
